FAERS Safety Report 19065368 (Version 6)
Quarter: 2021Q2

REPORT INFORMATION
  Report Type: Report from Study
  Country: None (occurrence: US)
  Receive Date: 20210327
  Receipt Date: 20210530
  Transmission Date: 20210717
  Serious: Yes (Other)
  Sender: FDA-Public Use
  Company Number: US-ABBVIE-21K-163-3792377-00

PATIENT
  Age: 63 Year
  Sex: Male
  Weight: 109.87 kg

DRUGS (9)
  1. METFORMIN [Concomitant]
     Active Substance: METFORMIN HYDROCHLORIDE
     Indication: BLOOD GLUCOSE ABNORMAL
  2. TIZANIDINE. [Concomitant]
     Active Substance: TIZANIDINE
     Indication: MUSCLE SPASMS
  3. ATORVASTATIN [Concomitant]
     Active Substance: ATORVASTATIN
     Indication: BLOOD CHOLESTEROL
  4. METFORMIN [Concomitant]
     Active Substance: METFORMIN HYDROCHLORIDE
     Indication: DIABETES MELLITUS
  5. PREGABALIN. [Concomitant]
     Active Substance: PREGABALIN
     Indication: NERVOUS SYSTEM DISORDER
  6. AMITRIPTYLINE [Concomitant]
     Active Substance: AMITRIPTYLINE
     Indication: SLEEP DISORDER
  7. HUMIRA [Suspect]
     Active Substance: ADALIMUMAB
     Indication: PSORIASIS
     Route: 058
     Dates: start: 20210204
  8. HYDROCODONE [Concomitant]
     Active Substance: HYDROCODONE
     Indication: BACK DISORDER
  9. ATORVASTATIN [Concomitant]
     Active Substance: ATORVASTATIN
     Indication: CARDIAC DISORDER

REACTIONS (18)
  - Iris injury [Unknown]
  - Glycosylated haemoglobin increased [Not Recovered/Not Resolved]
  - Eye infection [Not Recovered/Not Resolved]
  - Blindness [Not Recovered/Not Resolved]
  - Burning sensation [Unknown]
  - Productive cough [Not Recovered/Not Resolved]
  - Post procedural complication [Unknown]
  - Muscle spasms [Unknown]
  - Psoriasis [Not Recovered/Not Resolved]
  - Peripheral swelling [Unknown]
  - Cough [Recovering/Resolving]
  - Pain in extremity [Unknown]
  - Pain [Recovered/Resolved]
  - Cataract [Not Recovered/Not Resolved]
  - Cataract [Recovered/Resolved]
  - Gait disturbance [Unknown]
  - Joint stiffness [Unknown]
  - Drug ineffective [Unknown]

NARRATIVE: CASE EVENT DATE: 2021
